FAERS Safety Report 8748680 (Version 5)
Quarter: 2013Q1

REPORT INFORMATION
  Report Type: Report from Study
  Country: US (occurrence: US)
  Receive Date: 20120827
  Receipt Date: 20130205
  Transmission Date: 20140127
  Serious: Yes (Other)
  Sender: FDA-Public Use
  Company Number: US-ABBOTT-12P-163-0970218-00

PATIENT
  Age: 67 Year
  Sex: Male

DRUGS (10)
  1. HUMIRA PEN [Suspect]
     Indication: CROHN^S DISEASE
     Dates: start: 20120729, end: 20120729
  2. HUMIRA PEN [Suspect]
     Dates: start: 20120812
  3. HUMIRA PEN [Suspect]
     Dates: end: 201210
  4. PREDNISONE [Concomitant]
     Indication: CROHN^S DISEASE
     Dosage: 8 MG IN THE EVEING, 7 MG IN THE MORNING
  5. ENALAPRIL [Concomitant]
     Indication: HYPERTENSION
  6. COREG [Concomitant]
     Indication: BLOOD PRESSURE
     Dosage: DAILY
  7. CLONIDINE [Concomitant]
     Indication: HYPERTENSION
  8. FENTANYL [Concomitant]
     Indication: PAIN
     Dosage: INSERTED INTERNALLY
  9. DILAUDID [Concomitant]
     Indication: PAIN
     Dosage: INSERTED INTERNALLY
  10. ENTOCORT [Concomitant]
     Indication: PRODUCT USED FOR UNKNOWN INDICATION

REACTIONS (13)
  - Chest discomfort [Recovering/Resolving]
  - Myocardial infarction [Recovering/Resolving]
  - Chest pain [Recovered/Resolved]
  - Hyperhidrosis [Unknown]
  - Asthenia [Unknown]
  - Fatigue [Unknown]
  - Hypersomnia [Unknown]
  - Cardiac disorder [Unknown]
  - Dyspnoea [Unknown]
  - Hyperhidrosis [Unknown]
  - Oedema [Not Recovered/Not Resolved]
  - Gingival infection [Unknown]
  - Adverse reaction [Unknown]
